FAERS Safety Report 14061041 (Version 1)
Quarter: 2017Q4

REPORT INFORMATION
  Report Type: Spontaneous
  Country: FR (occurrence: FR)
  Receive Date: 20171007
  Receipt Date: 20171007
  Transmission Date: 20180321
  Serious: Yes (Other)
  Sender: FDA-Public Use
  Company Number: FR-MERCK KGAA-2029272

PATIENT

DRUGS (2)
  1. NOVOTHYROX [Suspect]
     Active Substance: LEVOTHYROXINE SODIUM
     Indication: THYROID MASS
     Route: 048
     Dates: start: 2008
  2. LEVOTHYROXINE. [Suspect]
     Active Substance: LEVOTHYROXINE
     Route: 048
     Dates: start: 20170716

REACTIONS (2)
  - Foetal exposure during pregnancy [Unknown]
  - Foetal growth restriction [Not Recovered/Not Resolved]

NARRATIVE: CASE EVENT DATE: 201612
